FAERS Safety Report 24928799 (Version 1)
Quarter: 2025Q1

REPORT INFORMATION
  Report Type: Spontaneous
  Country: FR (occurrence: FR)
  Receive Date: 20250205
  Receipt Date: 20250205
  Transmission Date: 20250409
  Serious: Yes (Hospitalization)
  Sender: TEVA
  Company Number: None

PATIENT
  Age: 87 Year
  Sex: Male
  Weight: 75 kg

DRUGS (4)
  1. DIAZEPAM [Suspect]
     Active Substance: DIAZEPAM
     Indication: Medication error
     Route: 048
     Dates: start: 20241221, end: 20241221
  2. QUETIAPINE [Suspect]
     Active Substance: QUETIAPINE
     Indication: Medication error
     Route: 048
     Dates: start: 20241221, end: 20241221
  3. VALPROIC ACID [Suspect]
     Active Substance: VALPROIC ACID
     Indication: Medication error
     Route: 048
     Dates: start: 20241221, end: 20241221
  4. LOXAPINE [Suspect]
     Active Substance: LOXAPINE
     Indication: Medication error
     Route: 048
     Dates: start: 20241221, end: 20241221

REACTIONS (4)
  - Urinary retention [Recovering/Resolving]
  - Wrong patient received product [Recovered/Resolved]
  - Somnolence [Recovering/Resolving]
  - Electrocardiogram QT prolonged [Not Recovered/Not Resolved]

NARRATIVE: CASE EVENT DATE: 20241221
